FAERS Safety Report 8485173-6 (Version None)
Quarter: 2012Q3

REPORT INFORMATION
  Report Type: 
  Country: None (occurrence: None)
  Receive Date: 20120703
  Receipt Date: 20120625
  Transmission Date: 20120928
  Serious: Yes (Hospitalization)
  Sender: FDA-Public Use
  Company Number: US-B.I. PHARMACEUTICALS,INC./RIDGEFIELD-2012-BP-14441BP

PATIENT
  Sex: Male
  Weight: 127 kg

DRUGS (4)
  1. MULTAQ [Concomitant]
     Indication: ARRHYTHMIA
     Dosage: 800 MG
     Route: 048
  2. PRADAXA [Suspect]
     Indication: ATRIAL FIBRILLATION
     Dosage: 300 MG
     Route: 048
     Dates: start: 20120201
  3. PRADAXA [Suspect]
     Indication: ANTICOAGULANT THERAPY
     Dosage: 300 MG
     Route: 048
     Dates: start: 20110201, end: 20110301
  4. DIGOXIN [Concomitant]
     Indication: ARRHYTHMIA
     Dosage: 0.0125 MG
     Route: 048
     Dates: start: 20120201

REACTIONS (1)
  - INFECTION [None]
